FAERS Safety Report 5610286-3 (Version None)
Quarter: 2008Q1

REPORT INFORMATION
  Report Type: 
  Country: None (occurrence: None)
  Receive Date: 20080131
  Receipt Date: 20080121
  Transmission Date: 20080703
  Serious: Yes (Hospitalization)
  Sender: FDA-Public Use
  Company Number: US-ABBOTT-08P-163-0434913-00

PATIENT
  Sex: Female
  Weight: 64.9 kg

DRUGS (5)
  1. ZEMPLAR [Suspect]
     Indication: RENAL FAILURE
     Route: 042
     Dates: end: 20080121
  2. ZEMPLAR [Suspect]
     Route: 058
     Dates: start: 20080121, end: 20080121
  3. ZEMPLAR [Suspect]
     Route: 042
  4. INSULIN ASPART [Concomitant]
     Indication: DIABETES MELLITUS
     Route: 058
  5. ISOPHANE INSULIN [Concomitant]
     Indication: DIABETES MELLITUS
     Route: 058

REACTIONS (4)
  - DIABETIC KETOACIDOSIS [None]
  - INCORRECT ROUTE OF DRUG ADMINISTRATION [None]
  - INJECTION SITE ERYTHEMA [None]
  - METHICILLIN-RESISTANT STAPHYLOCOCCAL AUREUS TEST POSITIVE [None]
